FAERS Safety Report 9277760 (Version 1)
Quarter: 2013Q2

REPORT INFORMATION
  Report Type: Spontaneous
  Country: US (occurrence: None)
  Receive Date: 20130503
  Receipt Date: 20130503
  Transmission Date: 20140414
  Serious: Yes (Life-Threatening, Hospitalization)
  Sender: FDA-Public Use
  Company Number: None

PATIENT
  Age: 52 Year
  Sex: Female
  Weight: 68.04 kg

DRUGS (1)
  1. AZITHROMYCIN Z-PAC [Suspect]
     Indication: BRONCHITIS
     Dosage: Z PACK
     Route: 048
     Dates: start: 20130204, end: 20130206

REACTIONS (4)
  - Ejection fraction decreased [None]
  - Blood pressure decreased [None]
  - Bronchitis [None]
  - Condition aggravated [None]
